FAERS Safety Report 9311331 (Version 1)
Quarter: 2013Q2

REPORT INFORMATION
  Report Type: Spontaneous
  Country: CN (occurrence: CN)
  Receive Date: 20130528
  Receipt Date: 20130528
  Transmission Date: 20140414
  Serious: Yes (Hospitalization)
  Sender: FDA-Public Use
  Company Number: CN-PFIZER INC-2013161374

PATIENT
  Age: 59 Year
  Sex: Male

DRUGS (2)
  1. CORDARONE [Suspect]
     Indication: ATRIAL FLUTTER
     Dosage: 0.2 G, DAILY
     Route: 048
     Dates: start: 20120719, end: 20121030
  2. CORDARONE [Suspect]
     Indication: HIGH FREQUENCY ABLATION

REACTIONS (4)
  - Dizziness [Recovering/Resolving]
  - Vision blurred [Recovering/Resolving]
  - Amaurosis [Recovering/Resolving]
  - Sinus arrest [Unknown]
